FAERS Safety Report 4541334-X (Version None)
Quarter: 2004Q4

REPORT INFORMATION
  Report Type: 
  Country: None (occurrence: None)
  Receive Date: 20041229
  Receipt Date: 20020516
  Transmission Date: 20050328
  Serious: Yes (Hospitalization, Other)
  Sender: FDA-Public Use
  Company Number: US-MERCK-0205USA02103

PATIENT
  Age: 72 Year
  Sex: Male
  Weight: 74 kg

DRUGS (8)
  1. VIOXX [Suspect]
     Indication: ARTHRITIS
     Route: 048
  2. ZOCOR [Concomitant]
     Route: 048
  3. PLAVIX [Concomitant]
     Route: 048
  4. LOTENSIN [Concomitant]
     Route: 048
  5. METOPROLOL [Concomitant]
     Route: 048
  6. ALFENTANIL HYDROCHLORIDE [Concomitant]
     Route: 065
  7. [THERAPY UNSPECIFIED] [Concomitant]
     Route: 048
  8. ASPIRIN [Concomitant]
     Route: 065

REACTIONS (37)
  - ACQUIRED CLAW TOE [None]
  - ACTIVATED PARTIAL THROMBOPLASTIN TIME SHORTENED [None]
  - ACUTE MYOCARDIAL INFARCTION [None]
  - ANGINA UNSTABLE [None]
  - ARTHROPATHY [None]
  - ASTHENIA [None]
  - BACK PAIN [None]
  - BASAL CELL CARCINOMA [None]
  - BLOOD PRESSURE INCREASED [None]
  - BURSITIS [None]
  - CALCINOSIS [None]
  - CAROTID ARTERY STENOSIS [None]
  - CARPAL TUNNEL SYNDROME [None]
  - CEREBROVASCULAR ACCIDENT [None]
  - CORONARY ARTERY DISSECTION [None]
  - CORONARY ARTERY OCCLUSION [None]
  - CORONARY ARTERY STENOSIS [None]
  - CORONARY OSTIAL STENOSIS [None]
  - DERMATITIS CONTACT [None]
  - DIABETES MELLITUS NON-INSULIN-DEPENDENT [None]
  - DIABETIC NEUROPATHY [None]
  - DIABETIC RETINOPATHY [None]
  - DIARRHOEA [None]
  - FALL [None]
  - HAEMARTHROSIS [None]
  - HAEMATOMA [None]
  - HEADACHE [None]
  - INJURY [None]
  - INTRACARDIAC THROMBUS [None]
  - MONARTHRITIS [None]
  - MYOCARDIAL INFARCTION [None]
  - MYOCARDIAL ISCHAEMIA [None]
  - PLATELET COUNT DECREASED [None]
  - PROTHROMBIN LEVEL DECREASED [None]
  - SLEEP APNOEA SYNDROME [None]
  - TENDONITIS [None]
  - WHITE BLOOD CELL COUNT DECREASED [None]
